FAERS Safety Report 6665635-4 (Version None)
Quarter: 2010Q2

REPORT INFORMATION
  Report Type: 
  Country: None (occurrence: None)
  Receive Date: 20100402
  Receipt Date: 20100322
  Transmission Date: 20101027
  Serious: Yes (Hospitalization)
  Sender: FDA-Public Use
  Company Number: US-RB-005194-10

PATIENT
  Sex: Female

DRUGS (1)
  1. SUBOXONE [Suspect]
     Dosage: 4 DAY RAPID DETOX
     Route: 060
     Dates: start: 20080101, end: 20080101

REACTIONS (1)
  - MENTAL DISORDER [None]
